FAERS Safety Report 9199756 (Version 1)
Quarter: 2013Q1

REPORT INFORMATION
  Report Type: Spontaneous
  Country: US (occurrence: None)
  Receive Date: 20130328
  Receipt Date: 20130328
  Transmission Date: 20140127
  Serious: Yes (Other)
  Sender: FDA-Public Use
  Company Number: None

PATIENT
  Age: 14 Year
  Sex: Female

DRUGS (2)
  1. ESCITALOPRAM OXALATE [Suspect]
     Indication: ATTENTION DEFICIT/HYPERACTIVITY DISORDER
     Dosage: 20 MG 1/2 QAM PO
     Route: 048
     Dates: start: 20121219
  2. ESCITALOPRAM OXALATE [Suspect]
     Indication: DEPRESSION
     Dosage: 20 MG 1/2 QAM PO
     Route: 048
     Dates: start: 20121219

REACTIONS (4)
  - Depression [None]
  - Condition aggravated [None]
  - Product substitution issue [None]
  - Nausea [None]
